FAERS Safety Report 18370774 (Version 1)
Quarter: 2020Q4

REPORT INFORMATION
  Report Type: Spontaneous
  Country: PL (occurrence: PL)
  Receive Date: 20201012
  Receipt Date: 20201012
  Transmission Date: 20210114
  Serious: Yes (Death, Other)
  Sender: FDA-Public Use
  Company Number: PL-ROCHE-2693376

PATIENT
  Age: 69 Year
  Sex: Male
  Weight: 60 kg

DRUGS (1)
  1. TOCILIZUMAB. [Suspect]
     Active Substance: TOCILIZUMAB
     Indication: COVID-19
     Route: 042
     Dates: start: 20200411, end: 20200412

REACTIONS (5)
  - Cardiac arrest [Unknown]
  - Intentional product use issue [Unknown]
  - Off label use [Unknown]
  - Death [Fatal]
  - Cardiopulmonary failure [Not Recovered/Not Resolved]

NARRATIVE: CASE EVENT DATE: 20200412
